FAERS Safety Report 6245573-1 (Version None)
Quarter: 2009Q2

REPORT INFORMATION
  Report Type: 
  Country: None (occurrence: None)
  Receive Date: 20090619
  Receipt Date: 20090404
  Transmission Date: 20091009
  Serious: No
  Sender: FDA-Public Use
  Company Number: ALL1-2009-00904

PATIENT
  Age: 10 Year
  Sex: Male
  Weight: 45.4 kg

DRUGS (3)
  1. VYVANSE [Suspect]
     Indication: ATTENTION DEFICIT/HYPERACTIVITY DISORDER
     Dosage: 30 MG, 1X/DAY:QD, ORAL
     Route: 048
     Dates: start: 20080901
  2. MIRALAX [Concomitant]
  3. STOOL SOFTENER (DOCUSATE SODIUM) [Concomitant]

REACTIONS (1)
  - MUSCLE TWITCHING [None]
